FAERS Safety Report 5564893-7 (Version None)
Quarter: 2007Q4

REPORT INFORMATION
  Report Type: 
  Country: None (occurrence: None)
  Receive Date: 20071218
  Receipt Date: 20071211
  Transmission Date: 20080405
  Serious: Yes (Hospitalization)
  Sender: FDA-Public Use
  Company Number: DE-JNJFOC-20071007402

PATIENT
  Sex: Male
  Weight: 26.5 kg

DRUGS (6)
  1. CONCERTA [Suspect]
     Route: 048
  2. CONCERTA [Suspect]
     Indication: ATTENTION DEFICIT/HYPERACTIVITY DISORDER
     Route: 048
  3. METHYLPHENIDATE HCL [Concomitant]
     Route: 048
  4. METHYLPHENIDATE HCL [Concomitant]
     Indication: ATTENTION DEFICIT/HYPERACTIVITY DISORDER
     Route: 048
  5. IBUPROFEN [Concomitant]
     Route: 048
  6. ASTHMADISC [Concomitant]
     Route: 065

REACTIONS (9)
  - INFECTION [None]
  - JOINT SWELLING [None]
  - OEDEMA PERIPHERAL [None]
  - OSTEOARTHRITIS [None]
  - PAIN [None]
  - PROTEINURIA [None]
  - RASH [None]
  - TESTICULAR SWELLING [None]
  - URTICARIA [None]
